FAERS Safety Report 9736676 (Version 1)
Quarter: 2013Q4

REPORT INFORMATION
  Report Type: Spontaneous
  Country: US (occurrence: US)
  Receive Date: 20131206
  Receipt Date: 20131206
  Transmission Date: 20140711
  Serious: No
  Sender: FDA-Public Use
  Company Number: US-GILEAD-2009-0023301

PATIENT
  Age: 67 Year
  Sex: Female
  Weight: 81.19 kg

DRUGS (7)
  1. LETAIRIS [Suspect]
     Indication: PULMONARY ARTERIAL HYPERTENSION
     Route: 048
  2. SINGULAIR [Concomitant]
  3. ZOCOR [Concomitant]
  4. LASIX [Concomitant]
  5. PREMARIN [Concomitant]
  6. ZOLOFT [Concomitant]
  7. PREVACID [Concomitant]

REACTIONS (2)
  - Fluid retention [Recovering/Resolving]
  - Anaemia [Unknown]
